FAERS Safety Report 6429739-3 (Version None)
Quarter: 2009Q4

REPORT INFORMATION
  Report Type: 
  Country: None (occurrence: None)
  Receive Date: 20091103
  Receipt Date: 20091019
  Transmission Date: 20100525
  Serious: Yes (Hospitalization)
  Sender: FDA-Public Use
  Company Number: 02100-JPN-07-0046

PATIENT
  Age: 55 Year
  Sex: Male
  Weight: 69.5 kg

DRUGS (6)
  1. PLETAL [Suspect]
     Indication: CEREBRAL INFARCTION
     Dosage: 81 MG, QD ORAL
     Route: 048
     Dates: start: 20050825, end: 20070110
  2. DIOVAN [Concomitant]
  3. FAMOTIDINE [Concomitant]
  4. TIZANIDINE HCL [Concomitant]
  5. LACTION (INDOMETACIN) [Concomitant]
  6. ADALAT CC [Concomitant]

REACTIONS (3)
  - ANAEMIA [None]
  - GASTRIC ULCER HAEMORRHAGE [None]
  - MALAISE [None]
